FAERS Safety Report 10881571 (Version 2)
Quarter: 2015Q4

REPORT INFORMATION
  Report Type: Spontaneous
  Country: US (occurrence: US)
  Receive Date: 20150303
  Receipt Date: 20151123
  Transmission Date: 20160304
  Serious: Yes (Hospitalization, Other)
  Sender: FDA-Public Use
  Company Number: US-BAYER-2015-029562

PATIENT
  Age: 46 Year
  Sex: Female
  Weight: 133.3 kg

DRUGS (20)
  1. METHOTREXATE [Concomitant]
     Active Substance: METHOTREXATE
     Dosage: 2.5 MG 5 WEEKLY
     Route: 048
  2. FOLATE SODIUM [Concomitant]
     Active Substance: FOLATE SODIUM
     Dosage: 1 MG, QD
     Route: 048
  3. METOCLOPRAMIDE. [Concomitant]
     Active Substance: METOCLOPRAMIDE
     Dosage: 5 MG, BID
     Route: 048
  4. BYETTA [Concomitant]
     Active Substance: EXENATIDE
     Dosage: 250 MCG /ML - 2.4 ML TWICE /DAY
     Route: 058
  5. METFORMIN [Concomitant]
     Active Substance: METFORMIN HYDROCHLORIDE
     Dosage: 500 MG, 2 TABLETS IN MORNING 3 TABLETS IN EVENING
     Route: 048
  6. LEVAQUIN [Concomitant]
     Active Substance: LEVOFLOXACIN
     Dosage: 500 MG, UNK
     Route: 048
     Dates: start: 20071224
  7. HYDROCHLOROTHIAZIDE. [Concomitant]
     Active Substance: HYDROCHLOROTHIAZIDE
     Dosage: 200 MG, UNK
     Route: 048
     Dates: start: 20080124
  8. ATACAND HCT [Concomitant]
     Active Substance: CANDESARTAN CILEXETIL\HYDROCHLOROTHIAZIDE
     Dosage: 16/12.5UNK UNK, QD
  9. NEXIUM [Concomitant]
     Active Substance: ESOMEPRAZOLE MAGNESIUM
     Dosage: 40 MG, QD
     Route: 048
  10. HUMULIN L [Concomitant]
     Active Substance: INSULIN HUMAN
     Dosage: 70 /30 TWICE /DAY
     Route: 058
  11. ACTOS [Concomitant]
     Active Substance: PIOGLITAZONE HYDROCHLORIDE
     Dosage: 45 MG, UNK
     Dates: start: 20080227
  12. PRAVASTATIN [Concomitant]
     Active Substance: PRAVASTATIN\PRAVASTATIN SODIUM
     Dosage: 40 MG, QD
     Route: 048
  13. PLAQUENIL [Concomitant]
     Active Substance: HYDROXYCHLOROQUINE SULFATE
     Dosage: 200 MG, BID
     Route: 048
  14. FOLIC ACID. [Concomitant]
     Active Substance: FOLIC ACID
  15. JANUVIA [Concomitant]
     Active Substance: SITAGLIPTIN PHOSPHATE
     Dosage: 100 MG, QD
     Route: 048
  16. YAZ [Suspect]
     Active Substance: DROSPIRENONE\ETHINYL ESTRADIOL
  17. PROCHLORPERAZINE. [Concomitant]
     Active Substance: PROCHLORPERAZINE
     Dosage: 10 MG, UNK
     Route: 048
     Dates: start: 20080304
  18. VICODIN [Concomitant]
     Active Substance: ACETAMINOPHEN\HYDROCODONE BITARTRATE
  19. LIDODERM [Concomitant]
     Active Substance: LIDOCAINE
     Dosage: 5 %, UNK
     Route: 061
     Dates: start: 20071207
  20. BELLATAL [Concomitant]
     Dosage: UNK UNK, PRN
     Route: 048

REACTIONS (5)
  - Arteriovenous fistula thrombosis [None]
  - Peripheral embolism [None]
  - Peripheral artery thrombosis [None]
  - Haematoma [None]
  - Embolism arterial [None]

NARRATIVE: CASE EVENT DATE: 20080305
